FAERS Safety Report 4686810-4 (Version None)
Quarter: 2005Q2

REPORT INFORMATION
  Report Type: 
  Country: None (occurrence: None)
  Receive Date: 20050608
  Receipt Date: 20050519
  Transmission Date: 20051028
  Serious: Yes (Life-Threatening, Hospitalization)
  Sender: FDA-Public Use
  Company Number: 6014552

PATIENT
  Age: 48 Year
  Sex: Female

DRUGS (11)
  1. VANCOMYCIN [Suspect]
     Dosage: 1,5 GM (1,5 GM, 1 D) INTRAVENOUS
     Route: 042
     Dates: start: 20050417, end: 20050421
  2. ALPRAZOLAM [Suspect]
     Indication: ANXIETY
     Dosage: 1 DOSAGE FORMS (1 DOSATES FORMS, 1 IN 1 D), ORAL
     Route: 048
     Dates: start: 20050402, end: 20050406
  3. GENTAMICIN [Suspect]
     Dosage: 180 MG (180 MG, 1 D), INTRAVENOUS
     Route: 042
     Dates: start: 20050417, end: 20050421
  4. IMOVANE (7,5 MG, TABLET )(ZOPICLONE) [Suspect]
     Dosage: ORAL
     Route: 048
     Dates: start: 20050412, end: 20050416
  5. LOVENOX [Suspect]
     Dosage: SUBCUTANEOUS
     Route: 058
  6. CORDARONE [Suspect]
     Dosage: 142,8571 MG (200 MG, 5 IN 1 WK)ORAL
     Route: 048
     Dates: start: 20050312, end: 20050416
  7. MORPHINE SULFATE [Suspect]
     Indication: PAIN
     Dosage: ORAL
     Route: 048
  8. ACTISKENAN (CAPSULE)(MORPHINE SULFATE) [Suspect]
     Indication: PAIN
     Dosage: ORAL
  9. ACETAMINOPHEN [Suspect]
     Indication: PAIN
  10. ATARAX (HYDROXYZINE HYDROCHLORIE) [Suspect]
     Indication: ANXIETY
     Dates: start: 20050407
  11. ATARAX (HYDROXYZINE HYDROCHLORIE) [Suspect]
     Indication: PRURITUS
     Dates: start: 20050407

REACTIONS (17)
  - ANXIETY [None]
  - CONDITION AGGRAVATED [None]
  - DIALYSIS [None]
  - ERYTHEMA MULTIFORME [None]
  - EXTREMITY NECROSIS [None]
  - FINGER AMPUTATION [None]
  - GAMMA-GLUTAMYLTRANSFERASE INCREASED [None]
  - HAND AMPUTATION [None]
  - HEPATIC ENZYME INCREASED [None]
  - LEG AMPUTATION [None]
  - PYREXIA [None]
  - RENAL FAILURE [None]
  - RESPIRATORY DISTRESS [None]
  - ROSEOLA [None]
  - TOE AMPUTATION [None]
  - TOXIC EPIDERMAL NECROLYSIS [None]
  - VIRAL INFECTION [None]
